FAERS Safety Report 16961084 (Version 1)
Quarter: 2019Q4

REPORT INFORMATION
  Report Type: Spontaneous
  Country: US (occurrence: US)
  Receive Date: 20191025
  Receipt Date: 20191025
  Transmission Date: 20200122
  Serious: Yes (Other)
  Sender: FDA-Public Use
  Company Number: US-NOVOPROD-691791

PATIENT
  Sex: Female

DRUGS (1)
  1. NOVOLOG [Suspect]
     Active Substance: INSULIN ASPART
     Indication: PRODUCT USED FOR UNKNOWN INDICATION
     Dosage: VARIES THROUGHOUT THE DAY
     Route: 058
     Dates: start: 201908

REACTIONS (2)
  - Hypersensitivity [Unknown]
  - Cellulitis [Unknown]

NARRATIVE: CASE EVENT DATE: 2019
